FAERS Safety Report 6564442-0 (Version None)
Quarter: 2010Q1

REPORT INFORMATION
  Report Type: 
  Country: None (occurrence: None)
  Receive Date: 20100201
  Receipt Date: 20100127
  Transmission Date: 20100710
  Serious: Yes (Death)
  Sender: FDA-Public Use
  Company Number: US-CELGENEUS-163-21880-09111731

PATIENT
  Sex: Male

DRUGS (18)
  1. REVLIMID [Suspect]
     Route: 048
     Dates: start: 20090616, end: 20090908
  2. RITUXAN [Suspect]
     Route: 065
     Dates: start: 20090817, end: 20090817
  3. RITUXAN [Suspect]
     Route: 065
     Dates: start: 20090824, end: 20090824
  4. RITUXAN [Suspect]
     Route: 065
     Dates: start: 20090831, end: 20090831
  5. RITUXAN [Suspect]
     Route: 065
     Dates: start: 20090908, end: 20090908
  6. DECADRON [Suspect]
     Route: 065
  7. AMBIEN CR [Concomitant]
     Indication: DRUG USE FOR UNKNOWN INDICATION
     Route: 065
  8. ASPIRIN [Concomitant]
     Indication: DRUG USE FOR UNKNOWN INDICATION
     Route: 065
  9. ASTELIN [Concomitant]
     Indication: DRUG USE FOR UNKNOWN INDICATION
     Route: 065
  10. CIALIS [Concomitant]
     Indication: DRUG USE FOR UNKNOWN INDICATION
     Route: 065
  11. RHINOCORT [Concomitant]
     Indication: DRUG USE FOR UNKNOWN INDICATION
     Route: 065
  12. METOPROLOL [Concomitant]
     Indication: DRUG USE FOR UNKNOWN INDICATION
     Route: 065
  13. ZESTRIL [Concomitant]
     Indication: DRUG USE FOR UNKNOWN INDICATION
     Route: 065
  14. MULTI-VITAMINS [Concomitant]
     Indication: DRUG USE FOR UNKNOWN INDICATION
     Route: 065
  15. COLACE [Concomitant]
     Indication: DRUG USE FOR UNKNOWN INDICATION
     Route: 065
  16. PERCOCET [Concomitant]
     Indication: DRUG USE FOR UNKNOWN INDICATION
     Route: 065
  17. PROCRIT [Concomitant]
     Indication: DRUG USE FOR UNKNOWN INDICATION
     Route: 065
  18. SENOKOT [Concomitant]
     Indication: DRUG USE FOR UNKNOWN INDICATION
     Route: 065

REACTIONS (1)
  - NEOPLASM PROGRESSION [None]
